FAERS Safety Report 23203153 (Version 2)
Quarter: 2023Q4

REPORT INFORMATION
  Report Type: Spontaneous
  Country: NL (occurrence: NL)
  Receive Date: 20231120
  Receipt Date: 20231204
  Transmission Date: 20240109
  Serious: Yes (Other)
  Sender: FDA-Public Use
  Company Number: None

PATIENT
  Age: 24 Year
  Sex: Female
  Weight: 102 kg

DRUGS (3)
  1. LITHIUM CARBONATE [Interacting]
     Active Substance: LITHIUM CARBONATE
     Dosage: 800 MG, QD
     Dates: end: 20231102
  2. LITHIUM CARBONATE [Interacting]
     Active Substance: LITHIUM CARBONATE
     Indication: Product used for unknown indication
     Dosage: 1200 MG, QD (INITIALLY INCREASED)
     Dates: start: 20220628
  3. OZEMPIC [Interacting]
     Active Substance: SEMAGLUTIDE
     Indication: Obesity
     Dosage: 1 DF QW (1X PER WEEK 1 INJECTION )
     Dates: start: 20230829

REACTIONS (3)
  - Toxicity to various agents [Recovered/Resolved]
  - Drug interaction [Recovered/Resolved]
  - Product use in unapproved indication [Unknown]

NARRATIVE: CASE EVENT DATE: 20230829
